FAERS Safety Report 24278295 (Version 1)
Quarter: 2024Q3

REPORT INFORMATION
  Report Type: Report from Study
  Country: US (occurrence: None)
  Receive Date: 20240903
  Receipt Date: 20240903
  Transmission Date: 20241017
  Serious: Yes (Other)
  Sender: ASTRAZENECA
  Company Number: 2024A195319

PATIENT
  Sex: Female

DRUGS (1)
  1. TAGRISSO [Suspect]
     Active Substance: OSIMERTINIB
     Route: 048

REACTIONS (7)
  - Pleural effusion [Not Recovered/Not Resolved]
  - Constipation [Unknown]
  - Nausea [Unknown]
  - Fatigue [Unknown]
  - Nail disorder [Unknown]
  - Cough [Unknown]
  - Vomiting [Unknown]
